FAERS Safety Report 4715930-0 (Version None)
Quarter: 2005Q3

REPORT INFORMATION
  Report Type: 
  Country: None (occurrence: None)
  Receive Date: 20050718
  Receipt Date: 20050222
  Transmission Date: 20060218
  Serious: Yes (Hospitalization, Other)
  Sender: FDA-Public Use
  Company Number: US-MERCK-0502USA03191

PATIENT
  Age: 50 Year
  Sex: Male
  Weight: 98 kg

DRUGS (15)
  1. VIOXX [Suspect]
     Indication: PAIN
     Route: 048
     Dates: start: 20010301, end: 20030112
  2. VIOXX [Suspect]
     Indication: ARTHRITIS
     Route: 048
     Dates: start: 20010301, end: 20030112
  3. PRILOSEC [Concomitant]
     Indication: DYSPEPSIA
     Route: 065
  4. ATENOLOL [Concomitant]
     Indication: HYPERTENSION
     Route: 048
  5. DIOVAN [Concomitant]
     Indication: HYPERTENSION
     Route: 065
  6. ZIAC [Concomitant]
     Indication: HYPERTENSION
     Route: 065
  7. HYZAAR [Concomitant]
     Indication: HYPERTENSION
     Route: 048
  8. LOPID [Concomitant]
     Indication: BLOOD CHOLESTEROL INCREASED
     Route: 065
  9. BETAPACE [Concomitant]
     Route: 065
     Dates: start: 20010101
  10. BETAPACE [Concomitant]
     Route: 065
     Dates: start: 20010101
  11. PLAVIX [Concomitant]
     Indication: PROPHYLAXIS
     Route: 065
  12. PLAVIX [Concomitant]
     Indication: PAIN
     Route: 065
  13. NEXIUM [Concomitant]
     Indication: GASTROOESOPHAGEAL REFLUX DISEASE
     Route: 065
  14. TRICOR [Concomitant]
     Indication: BLOOD CHOLESTEROL INCREASED
     Route: 065
  15. FOLTX [Concomitant]
     Indication: BLOOD CHOLESTEROL INCREASED
     Route: 065

REACTIONS (10)
  - AMNESIA [None]
  - BRAIN HYPOXIA [None]
  - CARDIAC ARREST [None]
  - DEPRESSION [None]
  - DIPLOPIA [None]
  - EYE INJURY [None]
  - MYOCARDIAL INFARCTION [None]
  - PSYCHOMOTOR SKILLS IMPAIRED [None]
  - SPEECH DISORDER [None]
  - TRAUMATIC BRAIN INJURY [None]
